FAERS Safety Report 15918904 (Version 1)
Quarter: 2019Q1

REPORT INFORMATION
  Report Type: Spontaneous
  Country: US (occurrence: US)
  Receive Date: 20190205
  Receipt Date: 20190205
  Transmission Date: 20190417
  Serious: Yes (Hospitalization, Other)
  Sender: FDA-Public Use
  Company Number: US-BAYER-2019-021306

PATIENT
  Age: 67 Year
  Sex: Male

DRUGS (2)
  1. ALKA-SELTZER EXTRA STRENGTH [Suspect]
     Active Substance: ANHYDROUS CITRIC ACID\ASPIRIN\SODIUM BICARBONATE
     Indication: GASTROINTESTINAL DISORDER
     Dosage: 2 DF
     Route: 048
     Dates: start: 20190124, end: 20190124
  2. ALKA-SELTZER EXTRA STRENGTH [Suspect]
     Active Substance: ANHYDROUS CITRIC ACID\ASPIRIN\SODIUM BICARBONATE
     Indication: GASTROINTESTINAL DISORDER
     Dosage: UNK
     Route: 048
     Dates: start: 201901, end: 201901

REACTIONS (9)
  - Dyspnoea [Unknown]
  - Hypertension [None]
  - Heart rate increased [None]
  - Hypersensitivity [Recovered/Resolved]
  - Hypotension [Recovered/Resolved]
  - Loss of consciousness [Unknown]
  - Pruritus [Recovered/Resolved]
  - Rash [Recovered/Resolved]
  - Pharyngeal oedema [Recovered/Resolved]

NARRATIVE: CASE EVENT DATE: 201901
